FAERS Safety Report 25598237 (Version 2)
Quarter: 2025Q3

REPORT INFORMATION
  Report Type: Report from Study
  Country: US (occurrence: US)
  Receive Date: 20250723
  Receipt Date: 20250731
  Transmission Date: 20251021
  Serious: Yes (Other)
  Sender: ALEXION PHARMACEUTICALS
  Company Number: US-AstraZeneca-CH-00914013A

PATIENT
  Sex: Male

DRUGS (1)
  1. ULTOMIRIS [Suspect]
     Active Substance: RAVULIZUMAB-CWVZ
     Route: 065

REACTIONS (16)
  - Myocardial infarction [Unknown]
  - Skin cancer [Unknown]
  - Abdominal pain upper [Unknown]
  - Dyspnoea [Unknown]
  - Blood glucose abnormal [Unknown]
  - Gait disturbance [Unknown]
  - Movement disorder [Unknown]
  - Illness [Unknown]
  - Laboratory test abnormal [Unknown]
  - Infection [Unknown]
  - Feeling abnormal [Unknown]
  - Pain [Unknown]
  - Liver disorder [Unknown]
  - Dizziness [Unknown]
  - Fatigue [Unknown]
  - Dysstasia [Unknown]
